FAERS Safety Report 7337841-7 (Version None)
Quarter: 2011Q1

REPORT INFORMATION
  Report Type: 
  Country: None (occurrence: None)
  Receive Date: 20110308
  Receipt Date: 20110304
  Transmission Date: 20110831
  Serious: Yes (Other)
  Sender: FDA-Public Use
  Company Number: CA-ROCHE-755086

PATIENT
  Sex: Female
  Weight: 78 kg

DRUGS (9)
  1. SIMVASTATIN [Concomitant]
  2. PLAQUENIL [Concomitant]
  3. PAROXETINE HCL [Concomitant]
     Dosage: DRUG NAME ^MILAN PAROXITINE^
  4. METHOTREXATE [Concomitant]
     Dates: end: 20101201
  5. METHOTREXATE [Concomitant]
  6. TOCILIZUMAB [Suspect]
     Indication: RHEUMATOID ARTHRITIS
     Dosage: FORM: INFUSION
     Route: 042
     Dates: start: 20101217
  7. EZETROL [Concomitant]
  8. EURO-FOLIC [Concomitant]
     Dosage: DRUG NAME REPORTED AS ^URO FOLIC^
  9. ENBREL [Concomitant]

REACTIONS (10)
  - TUBERCULOSIS [None]
  - ABDOMINAL DISCOMFORT [None]
  - RHEUMATOID ARTHRITIS [None]
  - SINUSITIS [None]
  - PAIN [None]
  - FATIGUE [None]
  - OEDEMA [None]
  - WHITE BLOOD CELL COUNT DECREASED [None]
  - SWELLING [None]
  - DIARRHOEA [None]
